FAERS Safety Report 7505386-7 (Version None)
Quarter: 2011Q2

REPORT INFORMATION
  Report Type: 
  Country: None (occurrence: None)
  Receive Date: 20110526
  Receipt Date: 20110127
  Transmission Date: 20111010
  Serious: Yes (Hospitalization, Other)
  Sender: FDA-Public Use
  Company Number: US-BAYER-201022164NA

PATIENT
  Sex: Female
  Weight: 65.76 kg

DRUGS (25)
  1. YAZ [Suspect]
     Indication: CONTRACEPTION
  2. YAZ [Suspect]
     Indication: PREMENSTRUAL SYNDROME
  3. TOPAMAX [Concomitant]
     Indication: MIGRAINE
     Dosage: UNK
     Dates: start: 20071101
  4. ASCORBIC ACID [Concomitant]
  5. AMBIEN [Concomitant]
     Indication: INSOMNIA
     Dosage: 12.5 MG, UNK
     Dates: start: 20070701
  6. YASMIN [Suspect]
     Indication: ACNE
     Route: 048
     Dates: start: 20020101
  7. UNKNOWN [Concomitant]
     Dosage: UNK
     Dates: start: 20070101
  8. WELLBUTRIN XL [Concomitant]
     Indication: DEPRESSION
     Dosage: 300 MG, UNK
     Dates: start: 20060101, end: 20090101
  9. YASMIN [Suspect]
     Indication: CONTRACEPTION
  10. WELLBUTRIN XL [Concomitant]
     Indication: ANXIETY
  11. ANTIBIOTICS [Concomitant]
  12. ZOLOFT [Concomitant]
     Indication: DEPRESSION
     Dosage: 100 MG, UNK
  13. CARISOPRODOL [Concomitant]
     Indication: MUSCLE RELAXANT THERAPY
     Dosage: 350 MG, PRN
     Dates: start: 20080901
  14. MIDOL IB [Concomitant]
     Indication: PREMENSTRUAL SYNDROME
     Dosage: 250 MG, UNK
  15. YAZ [Suspect]
     Indication: ACNE
     Dosage: UNK
     Dates: start: 20060101, end: 20090101
  16. MOTRIN [Concomitant]
     Indication: HEADACHE
     Dosage: 200 MG, UNK
  17. YASMIN [Suspect]
     Indication: PREMENSTRUAL SYNDROME
  18. CYMBALTA [Concomitant]
     Indication: DEPRESSION
  19. YAZ [Suspect]
  20. ATIVAN [Concomitant]
     Indication: ANXIETY
  21. RELPAX [Concomitant]
     Indication: MIGRAINE
     Dosage: 40 MG, UNK
  22. DROSPIRENONE AND ETHINYL ESTRADIOL [Suspect]
  23. NAPROXEN (ALEVE) [Concomitant]
  24. CENTRUM [Concomitant]
     Dosage: UNK
     Dates: start: 20040101
  25. ACETAMINOPHEN [Concomitant]
     Indication: ARTHRITIS
     Dosage: 500 G, UNK

REACTIONS (5)
  - CHOLECYSTITIS ACUTE [None]
  - GALLBLADDER DISORDER [None]
  - CHOLELITHIASIS [None]
  - MEDICAL DIET [None]
  - PAIN [None]
